FAERS Safety Report 4894212-0 (Version None)
Quarter: 2006Q1

REPORT INFORMATION
  Report Type: 
  Country: None (occurrence: None)
  Receive Date: 20060127
  Receipt Date: 20051020
  Transmission Date: 20060701
  Serious: No
  Sender: FDA-Public Use
  Company Number: US-GLAXOSMITHKLINE-A0578970A

PATIENT
  Age: 59 Year
  Sex: Female

DRUGS (4)
  1. BUPROPION HYDROCHLORIDE [Suspect]
     Indication: DEPRESSION
     Dosage: 100MG TWICE PER DAY
     Route: 048
     Dates: start: 20050901, end: 20050901
  2. KLONOPIN [Concomitant]
  3. TRAZODONE [Concomitant]
  4. LITHIUM [Concomitant]

REACTIONS (2)
  - TREMOR [None]
  - WEIGHT DECREASED [None]
